FAERS Safety Report 23971461 (Version 4)
Quarter: 2024Q3

REPORT INFORMATION
  Report Type: Report from Study
  Country: US (occurrence: US)
  Receive Date: 20240613
  Receipt Date: 20240812
  Transmission Date: 20241016
  Serious: Yes (Congenital Anomaly)
  Sender: GILEAD
  Company Number: US-GILEAD-2024-0675799

PATIENT
  Sex: Female
  Weight: 3.072 kg

DRUGS (3)
  1. BICTEGRAVIR\EMTRICITABINE\TENOFOVIR ALAFENAMIDE [Suspect]
     Active Substance: BICTEGRAVIR\EMTRICITABINE\TENOFOVIR ALAFENAMIDE
     Indication: HIV infection
     Dosage: 275 MG, QD
     Route: 064
     Dates: start: 20240117
  2. EMTRICITABINE\TENOFOVIR [Suspect]
     Active Substance: EMTRICITABINE\TENOFOVIR
     Indication: HIV infection
     Dosage: 225 MG, QD
     Route: 064
     Dates: start: 20231215, end: 20240117
  3. TIVICAY [Suspect]
     Active Substance: DOLUTEGRAVIR SODIUM
     Indication: HIV infection
     Dosage: 50 MG, QD
     Route: 064
     Dates: start: 20231215, end: 20240117

REACTIONS (5)
  - Tethered oral tissue [Unknown]
  - Hepatitis B surface antigen positive [Unknown]
  - Hepatic enzyme increased [Recovered/Resolved]
  - Anaemia [Recovered/Resolved]
  - Foetal exposure during pregnancy [Recovered/Resolved]
